FAERS Safety Report 9330268 (Version 2)
Quarter: 2014Q1

REPORT INFORMATION
  Report Type: Spontaneous
  Country: VN (occurrence: VN)
  Receive Date: 20130605
  Receipt Date: 20140303
  Transmission Date: 20141002
  Serious: Yes (Other)
  Sender: FDA-Public Use
  Company Number: VN-ROCHE-1232015

PATIENT
  Age: 39 Year
  Sex: Female
  Weight: 55 kg

DRUGS (2)
  1. MABTHERA [Suspect]
     Indication: RHEUMATOID ARTHRITIS
     Route: 042
     Dates: start: 20130529
  2. METHYLPREDNISOLON [Concomitant]
     Indication: PROPHYLAXIS
     Route: 065
     Dates: start: 20130531, end: 20130531

REACTIONS (1)
  - Anaphylactic shock [Recovered/Resolved]
